FAERS Safety Report 5778288-4 (Version None)
Quarter: 2008Q2

REPORT INFORMATION
  Report Type: 
  Country: None (occurrence: None)
  Receive Date: 20080619
  Receipt Date: 20080610
  Transmission Date: 20081010
  Serious: Yes (Hospitalization, Other)
  Sender: FDA-Public Use
  Company Number: DE-WYE-G01604108

PATIENT
  Sex: Male
  Weight: 12.5 kg

DRUGS (3)
  1. REFACTO [Suspect]
     Indication: FACTOR VIII DEFICIENCY
     Dosage: 41 IU/KG 3X PER WEEK FOR PROPHYLAXIS AND 250 IU ON DEMAND
     Route: 042
     Dates: start: 20080225, end: 20080101
  2. REFACTO [Suspect]
     Route: 042
     Dates: start: 20080609, end: 20080609
  3. REFACTO [Suspect]
     Dosage: UNKNOWN
     Route: 042
     Dates: start: 20080101, end: 20080101

REACTIONS (2)
  - ANTI FACTOR VIII ANTIBODY POSITIVE [None]
  - HAEMORRHAGE [None]
